FAERS Safety Report 6240622-9 (Version None)
Quarter: 2009Q2

REPORT INFORMATION
  Report Type: 
  Country: None (occurrence: None)
  Receive Date: 20090623
  Receipt Date: 20081110
  Transmission Date: 20091009
  Serious: No
  Sender: FDA-Public Use
  Company Number: US-ASTRAZENECA-2008UW25117

PATIENT
  Age: 6 Year
  Sex: Female

DRUGS (5)
  1. PULMICORT RESPULES [Suspect]
     Indication: WHEEZING
     Dosage: 0.5 MG/ML
     Route: 055
  2. PULMICORT RESPULES [Suspect]
     Indication: COUGH
     Dosage: 0.5 MG/ML
     Route: 055
  3. PULMICORT RESPULES [Suspect]
     Dosage: 1.0 MG/2 ML ONCE A DAY
     Route: 055
     Dates: start: 20081106
  4. PULMICORT RESPULES [Suspect]
     Dosage: 1.0 MG/2 ML ONCE A DAY
     Route: 055
     Dates: start: 20081106
  5. ALBUTEROL [Concomitant]

REACTIONS (2)
  - COUGH [None]
  - ERYTHEMA [None]
